FAERS Safety Report 6285422-9 (Version None)
Quarter: 2009Q3

REPORT INFORMATION
  Report Type: 
  Country: None (occurrence: None)
  Receive Date: 20090723
  Receipt Date: 20090710
  Transmission Date: 20100115
  Serious: Yes (Death)
  Sender: FDA-Public Use
  Company Number: 1000006213

PATIENT
  Age: 60 Year
  Sex: Male

DRUGS (3)
  1. CELEXA [Suspect]
     Indication: DEPRESSION
  2. ASPIRIN [Concomitant]
  3. ALCOHOL [Concomitant]

REACTIONS (2)
  - ALCOHOL USE [None]
  - CEREBRAL HAEMORRHAGE [None]
